FAERS Safety Report 5722712-X (Version None)
Quarter: 2008Q2

REPORT INFORMATION
  Report Type: 
  Country: None (occurrence: None)
  Receive Date: 20080429
  Receipt Date: 20070709
  Transmission Date: 20081010
  Serious: No
  Sender: FDA-Public Use
  Company Number: US-ASTRAZENECA-2007UW16024

PATIENT
  Age: 77 Year
  Sex: Female
  Weight: 67.6 kg

DRUGS (8)
  1. NEXIUM [Suspect]
     Indication: DYSPEPSIA
     Route: 048
     Dates: start: 20070501
  2. SINGULAIR [Concomitant]
  3. ASPIRIN [Concomitant]
  4. CALCIUM [Concomitant]
  5. VITAMIN [Concomitant]
  6. HYDROCHLOROTHIAZIDE [Concomitant]
  7. LORATADINE [Concomitant]
  8. VITAMIN B-12 [Concomitant]

REACTIONS (5)
  - BACK PAIN [None]
  - DIARRHOEA [None]
  - GAIT DISTURBANCE [None]
  - OEDEMA PERIPHERAL [None]
  - RASH [None]
